FAERS Safety Report 6684236-5 (Version None)
Quarter: 2010Q2

REPORT INFORMATION
  Report Type: 
  Country: None (occurrence: None)
  Receive Date: 20100416
  Receipt Date: 20100406
  Transmission Date: 20101027
  Serious: Yes (Hospitalization)
  Sender: FDA-Public Use
  Company Number: FR-PFIZER INC-2010013742

PATIENT
  Age: 43 Year
  Sex: Male

DRUGS (7)
  1. SALAZOPYRIN [Suspect]
     Indication: SPONDYLITIS
     Dosage: 500 MG, 1X/DAY
     Route: 048
     Dates: start: 20091115, end: 20091230
  2. NEXEN [Suspect]
     Indication: BACK PAIN
     Dosage: UNK
     Route: 048
     Dates: start: 20091001, end: 20100109
  3. CORTANCYL [Concomitant]
  4. NEBIVOLOL [Concomitant]
  5. NOVOMIX [Concomitant]
  6. NOVORAPID [Concomitant]
  7. GLUCOPHAGE [Concomitant]

REACTIONS (2)
  - HEPATITIS ACUTE [None]
  - RENAL FAILURE [None]
